FAERS Safety Report 23192880 (Version 6)
Quarter: 2024Q2

REPORT INFORMATION
  Report Type: Spontaneous
  Country: US (occurrence: US)
  Receive Date: 20231116
  Receipt Date: 20240516
  Transmission Date: 20240715
  Serious: Yes (Hospitalization, Other)
  Sender: FDA-Public Use
  Company Number: US-SA-SAC20231115000015

PATIENT
  Age: 34 Year
  Sex: Male

DRUGS (16)
  1. ELOCTATE [Suspect]
     Active Substance: EFMOROCTOCOG ALFA
     Indication: Factor VIII deficiency
     Dosage: 3290 U (3126-3454), QW FOR BLEEDS
     Route: 042
     Dates: start: 202310
  2. ELOCTATE [Suspect]
     Active Substance: EFMOROCTOCOG ALFA
     Indication: Factor VIII deficiency
     Dosage: 3290 U (3126-3454), QW FOR BLEEDS
     Route: 042
     Dates: start: 202310
  3. ELOCTATE [Suspect]
     Active Substance: EFMOROCTOCOG ALFA
     Dosage: 3290 U (3126-3454), PRN FOR BLEEDS
     Route: 042
     Dates: start: 202310
  4. ELOCTATE [Suspect]
     Active Substance: EFMOROCTOCOG ALFA
     Dosage: 3290 U (3126-3454), PRN FOR BLEEDS
     Route: 042
     Dates: start: 202310
  5. ELOCTATE [Suspect]
     Active Substance: EFMOROCTOCOG ALFA
     Dosage: 3310 U (3145-3475), QW
     Route: 042
  6. ELOCTATE [Suspect]
     Active Substance: EFMOROCTOCOG ALFA
     Dosage: 3310 U (3145-3475), QW
     Route: 042
  7. ELOCTATE [Suspect]
     Active Substance: EFMOROCTOCOG ALFA
     Dosage: 3310 U (3145-3475), PRN FOR BLEEDS
     Route: 042
  8. ELOCTATE [Suspect]
     Active Substance: EFMOROCTOCOG ALFA
     Dosage: 3310 U (3145-3475), PRN FOR BLEEDS
     Route: 042
  9. SODIUM CHLORIDE [Concomitant]
     Active Substance: SODIUM CHLORIDE
     Dosage: UNK
  10. ATIVAN [Concomitant]
     Active Substance: LORAZEPAM
  11. LEXAPRO [Concomitant]
     Active Substance: ESCITALOPRAM OXALATE
  12. VANCOMYCIN [Concomitant]
     Active Substance: VANCOMYCIN
  13. LEVAQUIN [Concomitant]
     Active Substance: LEVOFLOXACIN
  14. CLINDAMYCIN [Concomitant]
     Active Substance: CLINDAMYCIN
  15. TYLENOL [Concomitant]
     Active Substance: ACETAMINOPHEN
  16. CELEXAL [Concomitant]

REACTIONS (11)
  - Hypothermia [Recovered/Resolved]
  - Sepsis [Recovered/Resolved]
  - Leukocytosis [Recovered/Resolved]
  - Electrocardiogram QT prolonged [Unknown]
  - Haemorrhage [Recovered/Resolved]
  - Mouth haemorrhage [Not Recovered/Not Resolved]
  - Supraventricular extrasystoles [Unknown]
  - Road traffic accident [Unknown]
  - Traumatic haemorrhage [Unknown]
  - Skin laceration [Unknown]
  - Treatment noncompliance [Unknown]

NARRATIVE: CASE EVENT DATE: 20231101
